FAERS Safety Report 6729707-8 (Version None)
Quarter: 2010Q2

REPORT INFORMATION
  Report Type: 
  Country: None (occurrence: None)
  Receive Date: 20100518
  Receipt Date: 20100511
  Transmission Date: 20101027
  Serious: Yes (Other)
  Sender: FDA-Public Use
  Company Number: AU-WYE-G06115610

PATIENT
  Sex: Male

DRUGS (1)
  1. PRISTIQ [Suspect]
     Dates: start: 20090101

REACTIONS (4)
  - DRUG EFFECT DECREASED [None]
  - MALAISE [None]
  - MEDICATION RESIDUE [None]
  - SUICIDAL IDEATION [None]
